FAERS Safety Report 12189037 (Version 1)
Quarter: 2016Q1

REPORT INFORMATION
  Report Type: Report from Study
  Country: CA (occurrence: CA)
  Receive Date: 20160317
  Receipt Date: 20160317
  Transmission Date: 20160526
  Serious: Yes (Death, Hospitalization)
  Sender: FDA-Public Use
  Company Number: CA-ASTRAZENECA-2015SE88756

PATIENT
  Age: 751 Month
  Sex: Male

DRUGS (6)
  1. DECADRON [Concomitant]
     Active Substance: DEXAMETHASONE
  2. ZOLADEX LA [Suspect]
     Active Substance: GOSERELIN ACETATE
     Indication: PROSTATE CANCER
     Route: 058
     Dates: start: 20150305
  3. ZOLADEX LA [Suspect]
     Active Substance: GOSERELIN ACETATE
     Indication: PROSTATE CANCER
     Route: 058
     Dates: start: 20130305
  4. XGEVA [Concomitant]
     Active Substance: DENOSUMAB
  5. MORPHINE [Concomitant]
     Active Substance: MORPHINE
  6. FENTANYL. [Concomitant]
     Active Substance: FENTANYL

REACTIONS (2)
  - Intestinal obstruction [Unknown]
  - Death [Fatal]

NARRATIVE: CASE EVENT DATE: 201510
